FAERS Safety Report 10655217 (Version 2)
Quarter: 2014Q4

REPORT INFORMATION
  Report Type: Spontaneous
  Country: FR (occurrence: None)
  Receive Date: 20141212
  Receipt Date: 20141230
  Transmission Date: 20150529
  Serious: Yes (Hospitalization)
  Sender: FDA-Public Use
  Company Number: 8001146

PATIENT
  Age: 74 Year
  Sex: Female

DRUGS (14)
  1. KREDEX (CARVEDILOL) [Concomitant]
  2. ADANCOR (NICORANDIL) [Concomitant]
  3. INSULIN [Concomitant]
     Active Substance: INSULIN NOS
  4. BYETTA (EXENATIDE) [Concomitant]
  5. LEVODOPA [Concomitant]
     Active Substance: LEVODOPA
  6. APROVEL (IRBESARTAN) [Concomitant]
  7. CROMOPTIC (CROMOGLICATE SODIUM) [Concomitant]
  8. BENSERAZIDE HYDROCHLORIDE [Concomitant]
     Active Substance: BENSERAZIDE HYDROCHLORIDE
  9. KARDEGIC [Concomitant]
     Active Substance: ASPIRIN LYSINE
  10. EUTHYRAL [Suspect]
     Active Substance: LEVOTHYROXINE SODIUM\LIOTHYRONINE SODIUM
     Indication: THYROIDECTOMY
     Dosage: 1 DF (1 DF,1 IN 1 D), ORAL ?
     Route: 048
     Dates: start: 1979, end: 20141016
  11. TAHOR [Concomitant]
     Active Substance: ATORVASTATIN CALCIUM
  12. STAGID (METFORMIN EMBONATE) [Concomitant]
     Active Substance: METFORMIN PAMOATE
  13. DIAMICRON (GLICLAZIDE) [Concomitant]
     Active Substance: GLICLAZIDE
  14. TRANSIPEG /00754501/ (MACROGOL) [Concomitant]

REACTIONS (6)
  - Chest pain [None]
  - Dizziness [None]
  - Hyperthyroidism [None]
  - Fatigue [None]
  - Blood glucose increased [None]
  - Atrial fibrillation [None]

NARRATIVE: CASE EVENT DATE: 201405
